FAERS Safety Report 13496200 (Version 4)
Quarter: 2017Q3

REPORT INFORMATION
  Report Type: Spontaneous
  Country: FR (occurrence: FR)
  Receive Date: 20170428
  Receipt Date: 20170726
  Transmission Date: 20171127
  Serious: Yes (Death)
  Sender: FDA-Public Use
  Company Number: FR-PFIZER INC-2017182292

PATIENT
  Age: 65 Year
  Sex: Male

DRUGS (13)
  1. PERIKABIVEN [Suspect]
     Active Substance: ALANINE\ARGININE\ASPARTIC ACID\CALCIUM CHLORIDE\DEXTROSE MONOHYDRATE\GLUTAMIC ACID\GLYCINE\HISTIDINE\ISOLEUCINE\LEUCINE\LYSINE HYDROCHLORIDE\MAGNESIUM SULFATE HEPTAHYDRATE\METHIONINE\PHENYLALANINE\POTASSIUM CHLORIDE\PROLINE\SERINE\SODIUM ACETATE\SODIUM GLYCEROPHOSPHATE ANHYDROUS\SOYBEAN OIL\THREONIN
     Indication: MALNUTRITION
     Dosage: 1 DF, 1X/DAY
     Route: 042
  2. ZOPICLONE [Suspect]
     Active Substance: ZOPICLONE
     Indication: INSOMNIA
     Dosage: 0.5 DF, 1X/DAY
     Route: 048
     Dates: start: 20170409
  3. EUPANTOL [Suspect]
     Active Substance: PANTOPRAZOLE SODIUM
     Dosage: 40 MG, 1X/DAY
     Route: 048
     Dates: start: 20170401
  4. TERBUTALINE SULFATE. [Suspect]
     Active Substance: TERBUTALINE SULFATE
     Indication: RESPIRATORY DISORDER
     Dosage: 1 DF, 4X/DAY
     Route: 055
     Dates: start: 20170410
  5. SODIUM CHLORIDE. [Suspect]
     Active Substance: SODIUM CHLORIDE
     Indication: HYPONATRAEMIA
     Dosage: UNK
     Route: 042
     Dates: start: 20170331
  6. SODIUM BICARBONATE. [Suspect]
     Active Substance: SODIUM BICARBONATE
     Dosage: 2 ML, 3X/DAY
     Route: 055
     Dates: start: 20170410
  7. OROZAMUDOL [Suspect]
     Active Substance: TRAMADOL
     Indication: PAIN
     Dosage: 200 MG, 1X/DAY
     Route: 048
  8. PRINCI B [Suspect]
     Active Substance: PYRIDOXINE\THIAMINE
     Indication: ASTHENIA
     Dosage: 2 DF, 1X/DAY
     Route: 048
  9. ALDACTONE [Suspect]
     Active Substance: SPIRONOLACTONE
     Dosage: 150 MG, 1X/DAY
     Route: 048
  10. SAMSCA [Suspect]
     Active Substance: TOLVAPTAN
     Indication: HYPONATRAEMIA
     Dosage: 15 MG, UNK
     Route: 048
     Dates: start: 20170405
  11. DUPHALAC [Suspect]
     Active Substance: LACTULOSE
     Dosage: 2 DF, 2X/DAY
     Route: 048
     Dates: start: 20170401
  12. DELICAL [Suspect]
     Active Substance: DIETARY SUPPLEMENT
     Indication: MALNUTRITION
     Dosage: 2 DF, 1X/DAY
     Route: 048
     Dates: start: 20170331
  13. FUROSEMIDE. [Suspect]
     Active Substance: FUROSEMIDE
     Dosage: 1 DF, 1X/DAY
     Route: 048

REACTIONS (4)
  - Hypernatraemia [Fatal]
  - Choking [Fatal]
  - Cardiac arrest [Fatal]
  - Dehydration [Fatal]

NARRATIVE: CASE EVENT DATE: 20170411
